FAERS Safety Report 7904647-7 (Version None)
Quarter: 2011Q4

REPORT INFORMATION
  Report Type: 
  Country: None (occurrence: None)
  Receive Date: 20111109
  Receipt Date: 20111028
  Transmission Date: 20120403
  Serious: Yes (Hospitalization, Congenital Anomaly)
  Sender: FDA-Public Use
  Company Number: US-GLAXOSMITHKLINE-A0950468A

PATIENT
  Sex: Male
  Weight: 3 kg

DRUGS (2)
  1. LEVOTHYROXINE SODIUM [Concomitant]
  2. PAROXETINE HCL [Suspect]
     Indication: PRODUCT USED FOR UNKNOWN INDICATION
     Dosage: 20MG UNKNOWN
     Route: 064
     Dates: end: 20090701

REACTIONS (11)
  - HYPOPLASTIC LEFT HEART SYNDROME [None]
  - LIMB REDUCTION DEFECT [None]
  - FOETAL EXPOSURE DURING PREGNANCY [None]
  - PATENT DUCTUS ARTERIOSUS [None]
  - DOUBLE OUTLET RIGHT VENTRICLE [None]
  - FOETAL CYSTIC HYGROMA [None]
  - MITRAL VALVE ATRESIA [None]
  - ATRIAL SEPTAL DEFECT [None]
  - RENAL CYST [None]
  - LEFT VENTRICLE OUTFLOW TRACT OBSTRUCTION [None]
  - CONGENITAL HYPOTHYROIDISM [None]
